FAERS Safety Report 5435155-3 (Version None)
Quarter: 2007Q3

REPORT INFORMATION
  Report Type: 
  Country: None (occurrence: None)
  Receive Date: 20070828
  Receipt Date: 20070828
  Transmission Date: 20080115
  Serious: No
  Sender: FDA-Public Use
  Company Number: None

PATIENT
  Age: 40 Year
  Sex: Female
  Weight: 63.5036 kg

DRUGS (2)
  1. PEG-INTRON [Suspect]
     Indication: HEPATITIS C
     Dates: start: 20061013, end: 20070126
  2. REBETOL [Suspect]
     Dates: start: 20061013, end: 20070126

REACTIONS (5)
  - DEPRESSION [None]
  - FATIGUE [None]
  - HYPOTHYROIDISM [None]
  - INSOMNIA [None]
  - MUSCLE ATROPHY [None]
